FAERS Safety Report 19912767 (Version 1)
Quarter: 2021Q4

REPORT INFORMATION
  Report Type: Spontaneous
  Country: US (occurrence: US)
  Receive Date: 20211004
  Receipt Date: 20211004
  Transmission Date: 20220303
  Serious: Yes (Hospitalization)
  Sender: FDA-Public Use
  Company Number: None

PATIENT
  Age: 72 Year
  Sex: Female
  Weight: 106 kg

DRUGS (1)
  1. ALLOPURINOL [Suspect]
     Active Substance: ALLOPURINOL
     Dosage: ?          OTHER FREQUENCY:EVERY OTHER DAY;
     Route: 048

REACTIONS (2)
  - Stevens-Johnson syndrome [None]
  - Drug hypersensitivity [None]

NARRATIVE: CASE EVENT DATE: 20210911
